FAERS Safety Report 19305033 (Version 1)
Quarter: 2021Q2

REPORT INFORMATION
  Report Type: Spontaneous
  Country: US (occurrence: US)
  Receive Date: 20210526
  Receipt Date: 20210526
  Transmission Date: 20210717
  Serious: Yes (Hospitalization)
  Sender: FDA-Public Use
  Company Number: US-CLOVIS ONCOLOGY-CLO-2021-000818

PATIENT
  Sex: Female

DRUGS (1)
  1. RUBRACA [Suspect]
     Active Substance: RUCAPARIB CAMSYLATE
     Indication: BREAST CANCER
     Dosage: 600 MILLIGRAM, BID
     Route: 048
     Dates: start: 20200722

REACTIONS (3)
  - Road traffic accident [Unknown]
  - Product use in unapproved indication [Unknown]
  - Adverse event [Unknown]
